FAERS Safety Report 23847391 (Version 2)
Quarter: 2025Q1

REPORT INFORMATION
  Report Type: Spontaneous
  Country: US (occurrence: IN)
  Receive Date: 20240513
  Receipt Date: 20250108
  Transmission Date: 20250408
  Serious: Yes (Other)
  Sender: Kilitch Healthcare
  Company Number: US-KHC-000026

PATIENT

DRUGS (1)
  1. HYDRATION PF [Suspect]
     Active Substance: POLYETHYLENE GLYCOL 400\PROPYLENE GLYCOL
     Indication: Product used for unknown indication
     Route: 065

REACTIONS (3)
  - Eye infection [Not Recovered/Not Resolved]
  - Product formulation issue [Unknown]
  - Glaucoma [Unknown]
